FAERS Safety Report 4948414-5 (Version None)
Quarter: 2006Q1

REPORT INFORMATION
  Report Type: 
  Country: None (occurrence: None)
  Receive Date: 20060313
  Receipt Date: 20060227
  Transmission Date: 20060701
  Serious: Yes (Congenital Anomaly)
  Sender: FDA-Public Use
  Company Number: GXKR2006GB01241

PATIENT
  Sex: Male
  Weight: 6.3 kg

DRUGS (3)
  1. PROPRANOLOL [Suspect]
     Dosage: TRANSPLACENTAL
     Route: 064
  2. PREDNISOLONE [Suspect]
     Dosage: TRANSPLACENTAL
     Route: 064
  3. ASACOL [Suspect]
     Dosage: TRANSPLACENTAL
     Route: 064

REACTIONS (2)
  - CONGENITAL HEARING DISORDER [None]
  - DRUG EXPOSURE DURING PREGNANCY [None]
